FAERS Safety Report 7765928-3 (Version None)
Quarter: 2011Q3

REPORT INFORMATION
  Report Type: 
  Country: None (occurrence: None)
  Receive Date: 20110921
  Receipt Date: 20110907
  Transmission Date: 20111222
  Serious: Yes (Other)
  Sender: FDA-Public Use
  Company Number: CA-JNJFOC-20110904125

PATIENT
  Sex: Female
  Weight: 48.5 kg

DRUGS (7)
  1. ACTAMINOPHEN [Concomitant]
     Indication: PREMEDICATION
     Route: 048
  2. YASMIN [Concomitant]
     Route: 065
  3. PAXIL [Concomitant]
     Route: 065
  4. REMICADE [Suspect]
     Indication: CROHN'S DISEASE
     Route: 042
  5. REMICADE [Suspect]
     Dosage: FIFTH INFUSION
     Route: 042
     Dates: start: 20110709
  6. SEROQUEL [Concomitant]
     Route: 065
  7. HYDROCORTISONE [Concomitant]
     Indication: PREMEDICATION
     Route: 042

REACTIONS (4)
  - OROPHARYNGEAL DISCOMFORT [None]
  - MALAISE [None]
  - DYSPNOEA [None]
  - INFUSION RELATED REACTION [None]
